FAERS Safety Report 6802990-6 (Version None)
Quarter: 2010Q2

REPORT INFORMATION
  Report Type: 
  Country: None (occurrence: None)
  Receive Date: 20100628
  Receipt Date: 20100528
  Transmission Date: 20101027
  Serious: No
  Sender: FDA-Public Use
  Company Number: US-BAYER-201016262BCC

PATIENT
  Age: 77 Year
  Sex: Male
  Weight: 72 kg

DRUGS (5)
  1. ALEVE (CAPLET) [Suspect]
     Indication: BACK PAIN
     Dosage: TOTAL DAILY DOSE: 440 MG  UNIT DOSE: 220 MG
     Route: 048
     Dates: start: 20100528
  2. ASPIRIN [Concomitant]
     Route: 065
  3. TAZPIA [Concomitant]
     Route: 065
  4. QUINTADINE [Concomitant]
     Route: 065
  5. PRAVASTATIN [Concomitant]

REACTIONS (5)
  - BACK PAIN [None]
  - BURN OESOPHAGEAL [None]
  - DYSPHAGIA [None]
  - GLOSSODYNIA [None]
  - PAIN IN EXTREMITY [None]
